FAERS Safety Report 4440810-8 (Version None)
Quarter: 2004Q3

REPORT INFORMATION
  Report Type: 
  Country: None (occurrence: None)
  Receive Date: 20040827
  Receipt Date: 20030801
  Transmission Date: 20050211
  Serious: Yes (Hospitalization, Disabling, Other)
  Sender: FDA-Public Use
  Company Number: 001-0719-M0200142

PATIENT
  Age: 67 Year
  Sex: Female
  Weight: 68.0396 kg

DRUGS (7)
  1. LOPID [Suspect]
     Indication: HYPERLIPIDAEMIA
     Dosage: 1200 MG (600 MG, TWICE DAILY), ORAL
     Route: 048
     Dates: start: 20000403, end: 20000515
  2. CERIVASTATIN SODIUM (CERIVASTATIN SODIUM) [Suspect]
     Indication: HYPERLIPIDAEMIA
     Dosage: 0.4 MG (DAILY), ORAL
     Route: 048
     Dates: start: 19991221, end: 20000515
  3. DEXAMETHASONE [Suspect]
     Indication: ILL-DEFINED DISORDER
     Dosage: 8 MG (4 MG, EVERY 12 HOURS), INTRAVENOUS
     Route: 042
     Dates: start: 20000501
  4. FENOFIBRATE [Suspect]
     Indication: HYPERLIPIDAEMIA
     Dosage: 200 MG (DAILY), ORAL
     Route: 048
     Dates: start: 20010901
  5. CONJUGATED ESTROGEN [Concomitant]
  6. CALCIUM [Concomitant]
  7. ACETYLSALICYLIC ACID [Concomitant]

REACTIONS (23)
  - ACTIVATED PARTIAL THROMBOPLASTIN TIME SHORTENED [None]
  - BACK INJURY [None]
  - BALANCE DISORDER [None]
  - BLOOD PRESSURE INCREASED [None]
  - CERVICAL SPASM [None]
  - CONSTIPATION [None]
  - DEPRESSION [None]
  - DRUG INTERACTION [None]
  - EMOTIONAL DISORDER [None]
  - HEADACHE [None]
  - HERPES ZOSTER [None]
  - HYPERLIPIDAEMIA [None]
  - HYPERTENSION [None]
  - LABORATORY TEST ABNORMAL [None]
  - LOCALISED OSTEOARTHRITIS [None]
  - MYOSITIS [None]
  - NECK PAIN [None]
  - OEDEMA [None]
  - OSTEOPENIA [None]
  - PROTEIN TOTAL DECREASED [None]
  - RHABDOMYOLYSIS [None]
  - WEIGHT INCREASED [None]
  - WHITE BLOOD CELL COUNT INCREASED [None]
